FAERS Safety Report 16019137 (Version 2)
Quarter: 2019Q1

REPORT INFORMATION
  Report Type: Spontaneous
  Country: US (occurrence: US)
  Receive Date: 20190228
  Receipt Date: 20190306
  Transmission Date: 20190418
  Serious: Yes (Other)
  Sender: FDA-Public Use
  Company Number: US-PFIZER INC-2019085032

PATIENT
  Age: 44 Year
  Sex: Female

DRUGS (1)
  1. VERAPAMIL HCL [Suspect]
     Active Substance: VERAPAMIL HYDROCHLORIDE
     Indication: MIGRAINE PROPHYLAXIS
     Dosage: 8.4 G, UNK

REACTIONS (4)
  - Shock [Recovered/Resolved]
  - Product use in unapproved indication [Unknown]
  - Overdose [Recovered/Resolved]
  - Cardiogenic shock [Recovered/Resolved]
